FAERS Safety Report 19122039 (Version 1)
Quarter: 2021Q2

REPORT INFORMATION
  Report Type: Spontaneous
  Country: US (occurrence: US)
  Receive Date: 20210412
  Receipt Date: 20210412
  Transmission Date: 20210717
  Serious: Yes (Death, Other)
  Sender: FDA-Public Use
  Company Number: US-GLAXOSMITHKLINE-US2021GSK079184

PATIENT
  Sex: Female

DRUGS (4)
  1. RANITIDINE. [Suspect]
     Active Substance: RANITIDINE
     Indication: DYSPEPSIA
     Dosage: 150 MG, 1?2 TIMES PER WEEK
     Route: 065
     Dates: start: 199606, end: 201909
  2. RANITIDINE. [Suspect]
     Active Substance: RANITIDINE
     Indication: DYSPEPSIA
     Dosage: 75 MG, 1?2 TIMES PER WEEK
     Route: 065
     Dates: start: 199606, end: 201909
  3. RANITIDINE. [Suspect]
     Active Substance: RANITIDINE
     Indication: DYSPEPSIA
     Dosage: 150 MG, 1?2 TIMES PER WEEK
     Route: 065
     Dates: start: 199606, end: 201909
  4. RANITIDINE. [Suspect]
     Active Substance: RANITIDINE
     Indication: DYSPEPSIA
     Dosage: 75 MG, 1?2 TIMES PER WEEK
     Route: 065
     Dates: start: 199606, end: 201909

REACTIONS (4)
  - Lung neoplasm malignant [Unknown]
  - Colorectal cancer [Unknown]
  - Hepatic cancer [Unknown]
  - Neoplasm malignant [Fatal]
